FAERS Safety Report 16918148 (Version 1)
Quarter: 2019Q4

REPORT INFORMATION
  Report Type: Spontaneous
  Country: US (occurrence: US)
  Receive Date: 20190822
  Receipt Date: 20190822
  Transmission Date: 20200122
  Serious: No
  Sender: FDA-Public Use
  Company Number: None

PATIENT
  Sex: Male

DRUGS (1)
  1. CAPECITABINE 500MG [Suspect]
     Active Substance: CAPECITABINE
     Indication: LUNG NEOPLASM MALIGNANT
     Route: 048
     Dates: start: 201901

REACTIONS (2)
  - Palmar-plantar erythrodysaesthesia syndrome [None]
  - Neuropathy peripheral [None]
